FAERS Safety Report 8017518-5 (Version None)
Quarter: 2011Q4

REPORT INFORMATION
  Report Type: 
  Country: None (occurrence: None)
  Receive Date: 20111228
  Receipt Date: 20111228
  Transmission Date: 20120403
  Serious: No
  Sender: FDA-Public Use
  Company Number: None

PATIENT
  Sex: Male
  Weight: 92.9874 kg

DRUGS (1)
  1. GILENYA [Suspect]
     Dosage: 0.5 MG 1X DAILY ORAL
     Route: 048
     Dates: start: 20110201

REACTIONS (1)
  - CONSTIPATION [None]
